FAERS Safety Report 18314372 (Version 1)
Quarter: 2020Q3

REPORT INFORMATION
  Report Type: Other
  Country: CA (occurrence: CA)
  Receive Date: 20200926
  Receipt Date: 20200926
  Transmission Date: 20201103
  Serious: Yes (Other)
  Sender: FDA-Public Use
  Company Number: CA-CELLTRION INC.-2020CA026710

PATIENT

DRUGS (34)
  1. RITUXIMAB (UNKNOWN) [Suspect]
     Active Substance: RITUXIMAB
     Indication: EVANS SYNDROME
     Dosage: 725 MG, 1 EVERY 1 WEEK
     Route: 042
  2. RITUXIMAB (UNKNOWN) [Suspect]
     Active Substance: RITUXIMAB
     Dosage: 725 MG, 1 EVERY 1 WEEK
     Route: 042
  3. RITUXIMAB (UNKNOWN) [Suspect]
     Active Substance: RITUXIMAB
     Dosage: 725 MG, 1 EVERY 1 WEEK
     Route: 042
  4. FOLIC ACID. [Concomitant]
     Active Substance: FOLIC ACID
  5. WHOLE BLOOD [Concomitant]
     Active Substance: WHOLE BLOOD
     Dosage: UNK
     Route: 065
  6. WHOLE BLOOD [Concomitant]
     Active Substance: WHOLE BLOOD
     Dosage: UNK
     Route: 065
  7. WHOLE BLOOD [Concomitant]
     Active Substance: WHOLE BLOOD
     Dosage: UNK
     Route: 065
  8. RITUXIMAB (UNKNOWN) [Suspect]
     Active Substance: RITUXIMAB
     Indication: HAEMOLYTIC ANAEMIA
     Dosage: 725 MG, 1 EVERY 1 WEEK
     Route: 042
  9. RITUXIMAB (UNKNOWN) [Suspect]
     Active Substance: RITUXIMAB
     Dosage: 725 MG, 1 EVERY 1 WEEK
     Route: 042
  10. RITUXIMAB (UNKNOWN) [Suspect]
     Active Substance: RITUXIMAB
     Dosage: 725 MG, 1 EVERY 1 WEEK
     Route: 042
  11. WHOLE BLOOD [Concomitant]
     Active Substance: WHOLE BLOOD
     Dosage: UNK
     Route: 065
  12. WHOLE BLOOD [Concomitant]
     Active Substance: WHOLE BLOOD
     Dosage: UNK
     Route: 065
  13. WHOLE BLOOD [Concomitant]
     Active Substance: WHOLE BLOOD
     Dosage: UNK
     Route: 065
  14. BORON;BOSWELLIA SERRATA;CHONDROITIN SULFATE;COLLAGEN;CURCUMA LONGA RHI [Concomitant]
  15. WHOLE BLOOD [Concomitant]
     Active Substance: WHOLE BLOOD
     Dosage: UNK
     Route: 065
  16. RITUXIMAB (UNKNOWN) [Suspect]
     Active Substance: RITUXIMAB
     Indication: IMMUNE THROMBOCYTOPENIA
     Dosage: 725 MG, 1 EVERY 1 WEEK
     Route: 042
  17. MYCOPHENOLATE MOFETIL. [Suspect]
     Active Substance: MYCOPHENOLATE MOFETIL
     Indication: PRODUCT USED FOR UNKNOWN INDICATION
     Route: 065
  18. CICLOSPORIN [Concomitant]
     Active Substance: CYCLOSPORINE
  19. MAGNESIUM [Concomitant]
     Active Substance: MAGNESIUM
  20. PREDNISONE. [Concomitant]
     Active Substance: PREDNISONE
  21. WHOLE BLOOD [Concomitant]
     Active Substance: WHOLE BLOOD
     Dosage: UNK
     Route: 065
  22. WHOLE BLOOD [Concomitant]
     Active Substance: WHOLE BLOOD
     Dosage: UNK
     Route: 065
  23. WHOLE BLOOD [Concomitant]
     Active Substance: WHOLE BLOOD
     Dosage: UNK
     Route: 065
  24. RITUXIMAB (UNKNOWN) [Suspect]
     Active Substance: RITUXIMAB
     Dosage: 725 MG, 1 EVERY 1 WEEK
     Route: 042
  25. RISEDRONATE [Concomitant]
     Active Substance: RISEDRONATE SODIUM
  26. WHOLE BLOOD [Concomitant]
     Active Substance: WHOLE BLOOD
     Dosage: UNK
     Route: 065
  27. CHONDROITIN SULFATE;GLUCOSAMINE SULFATE [Concomitant]
  28. L?ARGININE [ARGININE] [Concomitant]
     Active Substance: ARGININE
  29. WHOLE BLOOD [Concomitant]
     Active Substance: WHOLE BLOOD
     Indication: HAEMOGLOBIN DECREASED
     Dosage: UNK
     Route: 065
  30. WHOLE BLOOD [Concomitant]
     Active Substance: WHOLE BLOOD
     Dosage: UNK
     Route: 065
  31. WHOLE BLOOD [Concomitant]
     Active Substance: WHOLE BLOOD
     Dosage: UNK
     Route: 065
  32. WHOLE BLOOD [Concomitant]
     Active Substance: WHOLE BLOOD
     Dosage: UNK
     Route: 065
  33. WHOLE BLOOD [Concomitant]
     Active Substance: WHOLE BLOOD
     Dosage: UNK
     Route: 065
  34. RITUXIMAB (UNKNOWN) [Suspect]
     Active Substance: RITUXIMAB
     Dosage: 725 MG, 1 EVERY 1 WEEK
     Route: 042

REACTIONS (5)
  - Haemoglobin decreased [Not Recovered/Not Resolved]
  - Arthritis [Not Recovered/Not Resolved]
  - Intentional product use issue [Not Recovered/Not Resolved]
  - Off label use [Not Recovered/Not Resolved]
  - Fungal infection [Not Recovered/Not Resolved]
